FAERS Safety Report 8160622-1 (Version None)
Quarter: 2012Q1

REPORT INFORMATION
  Report Type: 
  Country: None (occurrence: None)
  Receive Date: 20120223
  Receipt Date: 20120217
  Transmission Date: 20120608
  Serious: Yes (Hospitalization)
  Sender: FDA-Public Use
  Company Number: JP-ROCHE-1024151

PATIENT
  Sex: Female
  Weight: 54 kg

DRUGS (10)
  1. HERBAL,HOMEOPATHIC,+ DIETARY SUPPLEMENTS [Suspect]
     Indication: MENOPAUSAL SYMPTOMS
     Route: 048
     Dates: start: 20111014
  2. ACTEMRA [Suspect]
     Route: 042
     Dates: start: 20100723
  3. PREDNISOLONE [Suspect]
     Indication: RHEUMATOID ARTHRITIS
     Route: 048
     Dates: start: 20100417
  4. ATORVASTATIN CALCIUM [Suspect]
     Indication: HYPERCHOLESTEROLAEMIA
     Route: 048
     Dates: start: 20111001
  5. FERRIC PYROPHOSPHATE [Suspect]
     Indication: IRON DEFICIENCY ANAEMIA
     Route: 048
     Dates: start: 20110722, end: 20111013
  6. LANSOPRAZOLE [Suspect]
     Indication: GASTROOESOPHAGEAL REFLUX DISEASE
     Route: 048
     Dates: start: 20091109
  7. ALENDRONATE SODIUM [Suspect]
     Indication: OSTEOPOROSIS
     Route: 048
     Dates: start: 20090101
  8. KEISHI-BUKURYO-GAN [Concomitant]
     Indication: MENOPAUSAL SYMPTOMS
     Route: 048
     Dates: start: 20111014
  9. ACTEMRA [Suspect]
     Indication: RHEUMATOID ARTHRITIS
     Route: 058
     Dates: start: 20110107, end: 20111125
  10. DICLOFENAC SODIUM [Concomitant]
     Indication: RHEUMATOID ARTHRITIS
     Route: 061
     Dates: start: 20111014

REACTIONS (1)
  - OVARIAN CANCER [None]
